FAERS Safety Report 4864494-X (Version None)
Quarter: 2005Q4

REPORT INFORMATION
  Report Type: 
  Country: None (occurrence: None)
  Receive Date: 20051222
  Receipt Date: 20051216
  Transmission Date: 20060501
  Serious: Yes (Hospitalization, Other)
  Sender: FDA-Public Use
  Company Number: 2005UW19072

PATIENT

DRUGS (2)
  1. DIPRIVAN [Suspect]
     Indication: SEDATION
     Dosage: UNSPECIFIED
     Route: 042
  2. DIPRIVAN [Suspect]
     Indication: ANAESTHESIA
     Dosage: UNSPECIFIED
     Route: 042

REACTIONS (2)
  - PROPOFOL INFUSION SYNDROME [None]
  - RHABDOMYOLYSIS [None]
